FAERS Safety Report 5031663-8 (Version None)
Quarter: 2006Q2

REPORT INFORMATION
  Report Type: 
  Country: None (occurrence: None)
  Receive Date: 20060615
  Receipt Date: 20060530
  Transmission Date: 20061013
  Serious: Yes (Hospitalization)
  Sender: FDA-Public Use
  Company Number: 29285

PATIENT
  Age: 64 Year
  Sex: Male

DRUGS (6)
  1. DISCOTRINE (GLYCERYL TRINITRATE) [Suspect]
     Indication: ANGINA PECTORIS
     Dosage: 10 MG (10 MG, 1 IN 1 DAY (S)) TRANSDERMAL
     Route: 062
  2. ASPIRIN [Suspect]
     Indication: HYPERTENSIVE CARDIOMYOPATHY
     Dosage: 1 DOSAGE FORMS ORAL
     Route: 048
  3. ATORVASTATIN CALCIUM [Suspect]
     Indication: HYPERCHOLESTEROLAEMIA
     Dosage: 1 DOSAGE FORMS ORAL
     Route: 048
  4. PLAVIX [Suspect]
     Indication: HYPERTENSIVE CARDIOMYOPATHY
     Dosage: 75 MG ORAL
     Route: 048
  5. BISOPROLOL FUMARATE [Suspect]
     Indication: ANGINA PECTORIS
     Dosage: 10 MG ORAL
     Route: 048
     Dates: end: 20051201
  6. AMLODIPINE BESYLATE [Suspect]
     Indication: HYPERTENSIVE CARDIOMYOPATHY
     Dosage: 5 MG ORAL
     Route: 048

REACTIONS (3)
  - DRUG TOXICITY [None]
  - LICHENOID KERATOSIS [None]
  - SYSTEMIC LUPUS ERYTHEMATOSUS [None]
